FAERS Safety Report 8023952-X (Version None)
Quarter: 2012Q1

REPORT INFORMATION
  Report Type: 
  Country: None (occurrence: None)
  Receive Date: 20120105
  Receipt Date: 20120103
  Transmission Date: 20120608
  Serious: Yes (Other)
  Sender: FDA-Public Use
  Company Number: AU-PFIZER INC-2012000499

PATIENT
  Age: 68 Year
  Sex: Female

DRUGS (1)
  1. CELEBREX [Suspect]
     Dosage: 200 MG, 1X/DAY
     Dates: start: 20111118

REACTIONS (5)
  - RASH [None]
  - EYE IRRITATION [None]
  - EYE PAIN [None]
  - PRURITUS [None]
  - URINARY TRACT INFECTION [None]
